FAERS Safety Report 21279452 (Version 1)
Quarter: 2022Q3

REPORT INFORMATION
  Report Type: Report from Study
  Country: CN (occurrence: CN)
  Receive Date: 20220901
  Receipt Date: 20220901
  Transmission Date: 20221027
  Serious: Yes (Other)
  Sender: FDA-Public Use
  Company Number: CN-SUN PHARMACEUTICAL INDUSTRIES LTD-2022R1-353202

PATIENT
  Age: 59 Year
  Sex: Female

DRUGS (7)
  1. LENALIDOMIDE [Suspect]
     Active Substance: LENALIDOMIDE
     Indication: Central nervous system lymphoma
     Dosage: 25 MILLIGRAM, OD
     Route: 048
     Dates: start: 20220107, end: 20220202
  2. TEMOZOLOMIDE [Suspect]
     Active Substance: TEMOZOLOMIDE
     Indication: Central nervous system lymphoma
     Dosage: 150 MILLIGRAM/SQ. METER, OD ON DAYS 4 TO 8 EVERY 4 WEEKS
     Route: 065
     Dates: start: 20220107, end: 20220202
  3. METHOTREXATE [Suspect]
     Active Substance: METHOTREXATE
     Indication: Central nervous system lymphoma
     Dosage: 3.5 GRAM PER SQUARE METRE OVER 4 HOURS ON DAY 2
     Route: 065
     Dates: start: 20220107, end: 20220202
  4. ORELABRUTINIB [Suspect]
     Active Substance: ORELABRUTINIB
     Indication: Central nervous system lymphoma
     Dosage: 150 MILLIGRAM, OD
     Route: 048
     Dates: start: 20220107, end: 20220202
  5. RITUXIMAB [Suspect]
     Active Substance: RITUXIMAB
     Indication: Central nervous system lymphoma
     Dosage: 375 MILLIGRAM/SQ. METER ON DAY 1 EVERY 4 WEEKS
     Route: 042
     Dates: start: 20220107, end: 20220202
  6. LEUCOVORIN [Concomitant]
     Active Substance: LEUCOVORIN
     Indication: Drug toxicity prophylaxis
     Dosage: 50 MILLIGRAM, QID
     Route: 030
  7. PREDNISONE [Concomitant]
     Active Substance: PREDNISONE
     Indication: Central nervous system lymphoma
     Dosage: 10 MILLIGRAM, WEEKLY
     Route: 065

REACTIONS (1)
  - Disease progression [Unknown]
